FAERS Safety Report 9115225 (Version 1)
Quarter: 2013Q1

REPORT INFORMATION
  Report Type: Spontaneous
  Country: US (occurrence: US)
  Receive Date: 20130225
  Receipt Date: 20130225
  Transmission Date: 20140127
  Serious: Yes (Hospitalization)
  Sender: FDA-Public Use
  Company Number: US-OTSUKA-US-2013-10289

PATIENT
  Sex: 0

DRUGS (3)
  1. SAMSCA [Suspect]
     Indication: HYPONATRAEMIA
  2. IV BUMEX [Concomitant]
  3. MANNITOL [Concomitant]

REACTIONS (1)
  - Oliguria [Recovered/Resolved]
